FAERS Safety Report 7954633-6 (Version None)
Quarter: 2011Q4

REPORT INFORMATION
  Report Type: 
  Country: None (occurrence: None)
  Receive Date: 20111202
  Receipt Date: 20111129
  Transmission Date: 20120403
  Serious: Yes (Life-Threatening, Hospitalization)
  Sender: FDA-Public Use
  Company Number: PHEH2011US010652

PATIENT
  Sex: Female

DRUGS (7)
  1. PLAVIX [Concomitant]
  2. METOPROLOL TARTRATE [Concomitant]
  3. ASPIRIN [Concomitant]
  4. HYDROCODONE [Concomitant]
  5. FERROUS SULFATE TAB [Concomitant]
  6. GILENYA [Suspect]
     Indication: MULTIPLE SCLEROSIS
     Dosage: 0.5 MG, QD
     Route: 048
     Dates: start: 20110101
  7. CRESTOR [Concomitant]

REACTIONS (1)
  - MYOCARDIAL INFARCTION [None]
